FAERS Safety Report 7490190-9 (Version None)
Quarter: 2011Q2

REPORT INFORMATION
  Report Type: 
  Country: None (occurrence: None)
  Receive Date: 20110517
  Receipt Date: 20110517
  Transmission Date: 20111010
  Serious: Yes (Hospitalization)
  Sender: FDA-Public Use
  Company Number: None

PATIENT
  Sex: Male
  Weight: 40.6 kg

DRUGS (4)
  1. DEXAMETHASONE [Suspect]
     Dosage: 3.75 MG
  2. CYTARABINE [Suspect]
     Dosage: 70 MG
  3. ONCASPAR [Suspect]
     Dosage: 3050 IU
  4. VINCRISTINE SULFATE [Suspect]
     Dosage: 1.8 MG

REACTIONS (20)
  - RASH [None]
  - HYPOCALCAEMIA [None]
  - ABDOMINAL PAIN [None]
  - PYREXIA [None]
  - HYPOTENSION [None]
  - TROPONIN I INCREASED [None]
  - CLOSTRIDIUM TEST POSITIVE [None]
  - NAUSEA [None]
  - HYPERTENSION [None]
  - GLUCOSE URINE PRESENT [None]
  - THROMBOCYTOPENIA [None]
  - CAECITIS [None]
  - ENTEROCOCCUS TEST POSITIVE [None]
  - TACHYCARDIA [None]
  - NEUTROPHIL COUNT DECREASED [None]
  - SEPTIC SHOCK [None]
  - BLOOD FIBRINOGEN DECREASED [None]
  - ACTIVATED PARTIAL THROMBOPLASTIN TIME PROLONGED [None]
  - BRAIN NATRIURETIC PEPTIDE INCREASED [None]
  - X-RAY ABNORMAL [None]
